FAERS Safety Report 13670635 (Version 2)
Quarter: 2017Q3

REPORT INFORMATION
  Report Type: Report from Study
  Country: US (occurrence: US)
  Receive Date: 20170620
  Receipt Date: 20170831
  Transmission Date: 20171127
  Serious: No
  Sender: FDA-Public Use
  Company Number: US-009507513-1706USA006812

PATIENT
  Sex: Female

DRUGS (1)
  1. IMPLANON [Suspect]
     Active Substance: ETONOGESTREL
     Dosage: 1 ROD 3 YEARS
     Route: 059
     Dates: start: 20170609

REACTIONS (3)
  - Product quality issue [Unknown]
  - No adverse event [Unknown]
  - Complication of device insertion [Unknown]

NARRATIVE: CASE EVENT DATE: 20170609
